FAERS Safety Report 20709315 (Version 3)
Quarter: 2023Q2

REPORT INFORMATION
  Report Type: Report from Study
  Country: US (occurrence: US)
  Receive Date: 20220414
  Receipt Date: 20230405
  Transmission Date: 20230721
  Serious: No
  Sender: FDA-Public Use
  Company Number: US-NOVARTISTESTPH-NVSC2022US085004

PATIENT
  Sex: Female
  Weight: 49.887 kg

DRUGS (3)
  1. TREPROSTINIL [Suspect]
     Active Substance: TREPROSTINIL
     Indication: Pulmonary arterial hypertension
     Dosage: 22 NG/KG/MIN, CONT
     Route: 042
     Dates: start: 20220323
  2. TREPROSTINIL [Suspect]
     Active Substance: TREPROSTINIL
     Dosage: 17 NG/KG/ MIN, CONT
     Route: 065
     Dates: start: 20220323
  3. ADCIRCA [Concomitant]
     Active Substance: TADALAFIL
     Indication: Pulmonary arterial hypertension
     Dosage: UNK
     Route: 065

REACTIONS (9)
  - Malaise [Unknown]
  - Frustration tolerance decreased [Unknown]
  - Anxiety [Unknown]
  - Dyspnoea [Unknown]
  - Dizziness [Unknown]
  - Fatigue [Unknown]
  - Device issue [Not Recovered/Not Resolved]
  - Infusion site extravasation [Unknown]
  - Accidental exposure to product [Unknown]
